FAERS Safety Report 7406735-0 (Version None)
Quarter: 2011Q2

REPORT INFORMATION
  Report Type: 
  Country: None (occurrence: None)
  Receive Date: 20110406
  Receipt Date: 20110406
  Transmission Date: 20111010
  Serious: Yes (Other)
  Sender: FDA-Public Use
  Company Number: None

PATIENT
  Age: 56 Year
  Sex: Male
  Weight: 68.0396 kg

DRUGS (4)
  1. SORAFENIB [Suspect]
     Indication: METASTASES TO CENTRAL NERVOUS SYSTEM
     Dosage: 600MG BID
  2. DILTIAZEM [Concomitant]
  3. ASPIRIN [Concomitant]
  4. FISH OIL [Concomitant]

REACTIONS (5)
  - ALOPECIA [None]
  - HAEMOPTYSIS [None]
  - ERYTHEMA [None]
  - RASH MACULO-PAPULAR [None]
  - HEADACHE [None]
